FAERS Safety Report 4305349-9 (Version None)
Quarter: 2004Q1

REPORT INFORMATION
  Report Type: 
  Country: None (occurrence: None)
  Receive Date: 20040226
  Receipt Date: 20030707
  Transmission Date: 20041129
  Serious: Yes (Hospitalization)
  Sender: FDA-Public Use
  Company Number: US-BRISTOL-MYERS SQUIBB COMPANY-12320339

PATIENT
  Age: 61 Year
  Sex: Female
  Weight: 80 kg

DRUGS (3)
  1. TAXOL [Suspect]
     Indication: BREAST CANCER METASTATIC
     Route: 042
     Dates: start: 20030624, end: 20030624
  2. EPOETIN ALFA [Concomitant]
     Route: 058
     Dates: start: 20030624, end: 20030624
  3. FILGRASTIM [Concomitant]
     Dosage: 5 MCG PER KG OF BODY WEIGHT ON DAY 13

REACTIONS (3)
  - ANGIONEUROTIC OEDEMA [None]
  - HYPOTENSION [None]
  - SYNCOPE [None]
